FAERS Safety Report 7429195-2 (Version None)
Quarter: 2011Q2

REPORT INFORMATION
  Report Type: 
  Country: None (occurrence: None)
  Receive Date: 20110421
  Receipt Date: 20110412
  Transmission Date: 20111010
  Serious: Yes (Other)
  Sender: FDA-Public Use
  Company Number: FR-ASTRAZENECA-2011SE19652

PATIENT
  Sex: Female
  Weight: 59 kg

DRUGS (1)
  1. ZOMIG ORO [Suspect]
     Indication: MIGRAINE
     Dosage: FROM 2 TO 4 FASTMELTS MONTHLY, 2.5 MG PRN
     Route: 048

REACTIONS (1)
  - CORONARY ARTERY STENOSIS [None]
